FAERS Safety Report 8085222-3 (Version None)
Quarter: 2012Q1

REPORT INFORMATION
  Report Type: 
  Country: None (occurrence: None)
  Receive Date: 20120128
  Receipt Date: 20110321
  Transmission Date: 20120608
  Serious: No
  Sender: FDA-Public Use
  Company Number: US-ABBOTT-11P-163-0713253-00

PATIENT
  Age: 46 Year
  Sex: Male

DRUGS (4)
  1. HUMIRA [Suspect]
     Indication: RHEUMATOID ARTHRITIS
     Dates: start: 20110304
  2. PRILOSEC [Concomitant]
     Indication: ABDOMINAL DISCOMFORT
  3. VALIUM [Concomitant]
     Indication: INSOMNIA
  4. ATENOLOL [Concomitant]
     Indication: HYPERTENSION

REACTIONS (6)
  - LACERATION [None]
  - VOMITING [None]
  - NECK PAIN [None]
  - DIARRHOEA [None]
  - PYREXIA [None]
  - FATIGUE [None]
